FAERS Safety Report 23921147 (Version 2)
Quarter: 2024Q2

REPORT INFORMATION
  Report Type: Spontaneous
  Country: PT (occurrence: PT)
  Receive Date: 20240530
  Receipt Date: 20240615
  Transmission Date: 20240716
  Serious: Yes (Hospitalization)
  Sender: FDA-Public Use
  Company Number: PT-TEVA-VS-3202981

PATIENT
  Age: 84 Year
  Sex: Female

DRUGS (1)
  1. SULFAMETHOXAZOLE\TRIMETHOPRIM [Suspect]
     Active Substance: SULFAMETHOXAZOLE\TRIMETHOPRIM
     Indication: Cystitis
     Dosage: COTRIMOXAZOLE 160MG/800 MG
     Route: 048

REACTIONS (5)
  - Drug hypersensitivity [Recovered/Resolved]
  - Acute kidney injury [Recovered/Resolved]
  - Hepatic lesion [Recovered/Resolved]
  - Hyponatraemia [Recovered/Resolved]
  - Pancytopenia [Recovered/Resolved]
